FAERS Safety Report 6925449-4 (Version None)
Quarter: 2010Q3

REPORT INFORMATION
  Report Type: 
  Country: None (occurrence: None)
  Receive Date: 20100816
  Receipt Date: 20100804
  Transmission Date: 20110219
  Serious: Yes (Hospitalization)
  Sender: FDA-Public Use
  Company Number: US-WYE-H16816910

PATIENT
  Sex: Female
  Weight: 81.72 kg

DRUGS (1)
  1. RELISTOR [Suspect]
     Indication: CONSTIPATION
     Dosage: 12 MG EVERY 1 TOT
     Route: 065
     Dates: start: 20091016, end: 20091016

REACTIONS (9)
  - ABDOMINAL PAIN [None]
  - ABDOMINAL RIGIDITY [None]
  - BURNING SENSATION [None]
  - DEHYDRATION [None]
  - DRUG INEFFECTIVE [None]
  - FEELING OF BODY TEMPERATURE CHANGE [None]
  - NAUSEA [None]
  - PAIN [None]
  - VOMITING [None]
